FAERS Safety Report 14462130 (Version 1)
Quarter: 2018Q1

REPORT INFORMATION
  Report Type: Spontaneous
  Country: US (occurrence: US)
  Receive Date: 20180130
  Receipt Date: 20180130
  Transmission Date: 20180509
  Serious: No
  Sender: FDA-Public Use
  Company Number: US-MYLANLABS-2018M1007399

PATIENT
  Age: 87 Year
  Sex: Female
  Weight: 68 kg

DRUGS (1)
  1. ZOLPIDEM TARTRATE TABLETS, USP [Suspect]
     Active Substance: ZOLPIDEM TARTRATE
     Indication: INSOMNIA
     Dosage: 5 MG, UNK
     Route: 048

REACTIONS (1)
  - Drug effect increased [Recovered/Resolved]

NARRATIVE: CASE EVENT DATE: 20180122
